FAERS Safety Report 6428091-7 (Version None)
Quarter: 2009Q4

REPORT INFORMATION
  Report Type: 
  Country: None (occurrence: None)
  Receive Date: 20091105
  Receipt Date: 20091025
  Transmission Date: 20100525
  Serious: Yes (Hospitalization, Other)
  Sender: FDA-Public Use
  Company Number: US-AMGEN-US372716

PATIENT
  Age: 8 Year
  Sex: Female
  Weight: 30 kg

DRUGS (7)
  1. ENBREL [Suspect]
     Indication: JUVENILE ARTHRITIS
     Route: 058
     Dates: start: 20081017
  2. METHOTREXATE [Suspect]
     Indication: JUVENILE ARTHRITIS
     Route: 058
     Dates: start: 20080714
  3. NAPROSYN [Concomitant]
     Route: 048
     Dates: start: 20080301
  4. ALLEGRA [Concomitant]
  5. NASONEX [Concomitant]
  6. ADVAIR DISKUS 100/50 [Concomitant]
  7. FOLIC ACID [Concomitant]
     Route: 048

REACTIONS (4)
  - ABSCESS [None]
  - CELLULITIS [None]
  - EXOPHTHALMOS [None]
  - SINUSITIS [None]
